FAERS Safety Report 8290346-1 (Version None)
Quarter: 2012Q2

REPORT INFORMATION
  Report Type: 
  Country: None (occurrence: None)
  Receive Date: 20120412
  Receipt Date: 20120412
  Transmission Date: 20120825
  Serious: Yes (Other)
  Sender: FDA-Public Use
  Company Number: None

PATIENT
  Age: 74 Year
  Sex: Female
  Weight: 58.9676 kg

DRUGS (1)
  1. LISTERINE WHITENING PRE-BRUSH RINSE CLEAN MINT (ORAL CARE PRIODUCTS) L [Suspect]
     Indication: PRODUCT USED FOR UNKNOWN INDICATION
     Dosage: 2 IN 1 DAY, ORAL
     Route: 048
     Dates: start: 20120301, end: 20120330

REACTIONS (4)
  - DRY SKIN [None]
  - RASH MACULAR [None]
  - ERYTHEMA [None]
  - PRURITUS [None]
